FAERS Safety Report 4979126-X (Version None)
Quarter: 2006Q2

REPORT INFORMATION
  Report Type: 
  Country: None (occurrence: None)
  Receive Date: 20060421
  Receipt Date: 20060412
  Transmission Date: 20061013
  Serious: Yes (Other)
  Sender: FDA-Public Use
  Company Number: PHEH2006US04859

PATIENT
  Sex: Male

DRUGS (2)
  1. EXELON [Suspect]
     Indication: ABNORMAL BEHAVIOUR
     Dosage: 1.5 MG, BID
     Route: 048
  2. EXELON [Suspect]
     Dosage: 3 MG, BID
     Route: 048

REACTIONS (3)
  - ABNORMAL BEHAVIOUR [None]
  - CONDITION AGGRAVATED [None]
  - SEROTONIN SYNDROME [None]
